FAERS Safety Report 8761910 (Version 2)
Quarter: 2012Q4

REPORT INFORMATION
  Report Type: 
  Country: US (occurrence: US)
  Receive Date: 20120829
  Receipt Date: 20120907
  Transmission Date: 20130627
  Serious: Yes (Other)
  Sender: FDA-Public Use
  Company Number: US-PFIZER INC-2012211030

PATIENT
  Age: 29 Year
  Sex: Male
  Weight: 81.63 kg

DRUGS (3)
  1. CHANTIX [Suspect]
     Indication: SMOKING CESSATION THERAPY
     Dosage: 0.5 mg, daily
     Route: 048
     Dates: start: 20120822
  2. ZZZQUIL NIGHTTIME SLEEP-AID [Suspect]
     Indication: SLEEP DISORDER
     Dosage: 30 ml daily at night
     Dates: start: 201208
  3. HUMALOG [Suspect]
     Indication: TYPE 1 DIABETES MELLITUS
     Dosage: 60 IU, daily

REACTIONS (3)
  - Blood glucose increased [Unknown]
  - Drug effect incomplete [Unknown]
  - Insomnia [Unknown]
